FAERS Safety Report 4988874-7 (Version None)
Quarter: 2006Q2

REPORT INFORMATION
  Report Type: 
  Country: None (occurrence: None)
  Receive Date: 20060502
  Receipt Date: 20060104
  Transmission Date: 20061013
  Serious: Yes (Death, Hospitalization)
  Sender: FDA-Public Use
  Company Number: US-MERCK-0601USA00533

PATIENT
  Age: 69 Year
  Sex: Female
  Weight: 100 kg

DRUGS (15)
  1. DARVOCET [Concomitant]
     Route: 048
  2. CALCIUM (UNSPECIFIED) AND VITAMIN D (UNSPECIFIED) [Concomitant]
     Route: 048
  3. VIOXX [Suspect]
     Indication: BACK PAIN
     Route: 048
     Dates: start: 20010514, end: 20031128
  4. AMITRIPTYLINE HYDROCHLORIDE [Concomitant]
     Indication: DEPRESSION
     Route: 048
  5. DILTIAZEM [Concomitant]
     Route: 048
  6. METOCLOPRAMIDE HYDROCHLORIDE [Concomitant]
     Route: 048
  7. OYSCO [Concomitant]
     Route: 065
  8. ACETAMINOPHEN AND PROPOXYPHENE NAPSYLATE [Concomitant]
     Route: 065
  9. PROTONIX [Concomitant]
     Indication: GASTROOESOPHAGEAL REFLUX DISEASE
     Route: 048
  10. TIZANIDINE HYDROCHLORIDE [Concomitant]
     Route: 048
  11. HYZAAR [Concomitant]
     Route: 048
  12. ATENOLOL [Concomitant]
     Route: 065
     Dates: start: 20010101, end: 20031101
  13. ZOCOR [Concomitant]
     Route: 065
     Dates: start: 20030819, end: 20031101
  14. LIPITOR [Concomitant]
     Indication: HYPERLIPIDAEMIA
     Route: 048
  15. TENORETIC 100 [Concomitant]
     Route: 048

REACTIONS (16)
  - ANAEMIA [None]
  - ARTHROPATHY [None]
  - ATRIAL FIBRILLATION [None]
  - BUNDLE BRANCH BLOCK RIGHT [None]
  - CARDIAC ARREST [None]
  - CARDIOGENIC SHOCK [None]
  - CULTURE URINE POSITIVE [None]
  - HAEMORRHAGE [None]
  - HYPOTENSION [None]
  - LACTIC ACIDOSIS [None]
  - MYOCARDIAL INFARCTION [None]
  - RENAL FAILURE [None]
  - URINARY TRACT INFECTION [None]
  - UROSEPSIS [None]
  - VENTRICULAR TACHYCARDIA [None]
  - WHITE BLOOD CELLS URINE POSITIVE [None]
